FAERS Safety Report 6841799-4 (Version None)
Quarter: 2010Q3

REPORT INFORMATION
  Report Type: 
  Country: None (occurrence: None)
  Receive Date: 20100714
  Receipt Date: 20100712
  Transmission Date: 20110219
  Serious: Yes (Hospitalization)
  Sender: FDA-Public Use
  Company Number: FR-MERCK-1006FRA00086

PATIENT
  Age: 78 Year
  Sex: Female

DRUGS (9)
  1. VYTORIN [Suspect]
     Indication: HYPERCHOLESTEROLAEMIA
     Route: 048
     Dates: start: 20091201, end: 20100601
  2. RAMIPRIL [Concomitant]
     Route: 048
  3. NEBIVOLOL HYDROCHLORIDE [Concomitant]
     Route: 048
  4. ASPIRIN LYSINE [Concomitant]
     Route: 048
  5. NICARDIPINE HYDROCHLORIDE [Concomitant]
     Route: 048
  6. FUROSEMIDE [Concomitant]
     Route: 048
  7. GLICLAZIDE [Concomitant]
     Route: 048
  8. LEVOTHYROXINE SODIUM [Concomitant]
     Route: 048
  9. ALLOPURINOL [Concomitant]
     Route: 048

REACTIONS (2)
  - CYTOLYTIC HEPATITIS [None]
  - RHABDOMYOLYSIS [None]
